FAERS Safety Report 11283934 (Version 1)
Quarter: 2015Q3

REPORT INFORMATION
  Report Type: Report from Study
  Country: ES (occurrence: ES)
  Receive Date: 20150720
  Receipt Date: 20150720
  Transmission Date: 20151125
  Serious: Yes (Other)
  Sender: FDA-Public Use
  Company Number: ES-SA-2015SA101981

PATIENT
  Age: 70 Year
  Sex: Female

DRUGS (6)
  1. ACETYLSALICYLIC ACID [Concomitant]
     Active Substance: ASPIRIN
  2. ROSUVASTATIN [Concomitant]
     Active Substance: ROSUVASTATIN
  3. ACENOCOUMAROL [Concomitant]
     Active Substance: ACENOCOUMAROL
  4. DRONEDARONE [Suspect]
     Active Substance: DRONEDARONE
     Route: 065
  5. FUROSEMIDE. [Concomitant]
     Active Substance: FUROSEMIDE
  6. BISOPROLOL [Concomitant]
     Active Substance: BISOPROLOL

REACTIONS (4)
  - Cardiac failure [Recovering/Resolving]
  - Multi-organ failure [Recovering/Resolving]
  - Hepatitis acute [Recovering/Resolving]
  - Renal failure [Recovering/Resolving]
